FAERS Safety Report 6016603-7 (Version None)
Quarter: 2008Q4

REPORT INFORMATION
  Report Type: 
  Country: None (occurrence: None)
  Receive Date: 20081222
  Receipt Date: 20081212
  Transmission Date: 20090506
  Serious: Yes (Hospitalization, Other)
  Sender: FDA-Public Use
  Company Number: PHHY2008JP29451

PATIENT

DRUGS (2)
  1. NEORAL [Suspect]
     Indication: DERMATOMYOSITIS
     Dosage: 0.25 ML/DAY
     Route: 048
     Dates: end: 20081120
  2. PREDNISOLONE [Concomitant]
     Dosage: 5 MG
     Route: 048

REACTIONS (6)
  - BLOOD ALBUMIN DECREASED [None]
  - BLOOD CHOLINESTERASE DECREASED [None]
  - BLOOD MAGNESIUM DECREASED [None]
  - BLOOD UREA INCREASED [None]
  - HAEMOGLOBIN DECREASED [None]
  - PROTEIN TOTAL DECREASED [None]
